FAERS Safety Report 8236349-4 (Version None)
Quarter: 2012Q1

REPORT INFORMATION
  Report Type: 
  Country: None (occurrence: None)
  Receive Date: 20120327
  Receipt Date: 20120322
  Transmission Date: 20120608
  Serious: Yes (Other)
  Sender: FDA-Public Use
  Company Number: CN-US-EMD SERONO, INC.-7120771

PATIENT
  Sex: Female
  Weight: 52 kg

DRUGS (3)
  1. GONAL-F [Suspect]
     Route: 058
     Dates: start: 20101118, end: 20101118
  2. GONAL-F [Suspect]
     Indication: IN VITRO FERTILISATION
     Route: 058
     Dates: start: 20101108, end: 20101110
  3. GONAL-F [Suspect]
     Route: 058
     Dates: start: 20101111, end: 20101117

REACTIONS (1)
  - ABORTION MISSED [None]
